FAERS Safety Report 11993620 (Version 2)
Quarter: 2016Q1

REPORT INFORMATION
  Report Type: Spontaneous
  Country: US (occurrence: US)
  Receive Date: 20160203
  Receipt Date: 20160216
  Transmission Date: 20160526
  Serious: No
  Sender: FDA-Public Use
  Company Number: US-PFIZER INC-2016059171

PATIENT
  Age: 57 Year
  Sex: Female
  Weight: 95.25 kg

DRUGS (1)
  1. PREMPHASE [Suspect]
     Active Substance: ESTROGENS, CONJUGATED\MEDROXYPROGESTERONE ACETATE
     Indication: HORMONE THERAPY
     Dosage: 1 DF, 1X/DAY (0.625 MG/5MG 1 TABLET BY MOUTH DAILY)
     Route: 048

REACTIONS (5)
  - Vomiting [Recovered/Resolved]
  - Amnesia [Recovered/Resolved]
  - Migraine [Recovered/Resolved]
  - Feeling abnormal [Recovered/Resolved]
  - Drug dose omission [Recovered/Resolved]

NARRATIVE: CASE EVENT DATE: 20160124
